FAERS Safety Report 19281733 (Version 1)
Quarter: 2021Q2

REPORT INFORMATION
  Report Type: Spontaneous
  Country: US (occurrence: US)
  Receive Date: 20210521
  Receipt Date: 20210521
  Transmission Date: 20210717
  Serious: No
  Sender: FDA-Public Use
  Company Number: US-CIPLA LTD.-2021US00931

PATIENT

DRUGS (1)
  1. DICLOFENAC [Suspect]
     Active Substance: DICLOFENAC
     Indication: LIMB INJURY
     Dosage: 2 GRAM, UNK
     Route: 061
     Dates: start: 20210205, end: 20210205

REACTIONS (5)
  - Migraine [Not Recovered/Not Resolved]
  - Product odour abnormal [Unknown]
  - Product use in unapproved indication [Unknown]
  - Reaction to excipient [Not Recovered/Not Resolved]
  - Off label use [Unknown]

NARRATIVE: CASE EVENT DATE: 20210205
